FAERS Safety Report 25312173 (Version 1)
Quarter: 2025Q2

REPORT INFORMATION
  Report Type: Spontaneous
  Country: DK (occurrence: DK)
  Receive Date: 20250510
  Receipt Date: 20250510
  Transmission Date: 20250717
  Serious: Yes (Disabling, Other)
  Sender: NOVO NORDISK
  Company Number: DK-NOVOPROD-1402616

PATIENT
  Sex: Female

DRUGS (1)
  1. VICTOZA [Suspect]
     Active Substance: LIRAGLUTIDE
     Indication: Type 1 diabetes mellitus

REACTIONS (5)
  - Diabetic retinopathy [Unknown]
  - Accident [Unknown]
  - Lower limb fracture [Unknown]
  - Tibia fracture [Unknown]
  - Ankle fracture [Unknown]
